FAERS Safety Report 5218607-0 (Version None)
Quarter: 2007Q1

REPORT INFORMATION
  Report Type: 
  Country: None (occurrence: None)
  Receive Date: 20070122
  Receipt Date: 20070105
  Transmission Date: 20070707
  Serious: Yes (Other)
  Sender: FDA-Public Use
  Company Number: 8021216

PATIENT
  Age: 15 Year
  Sex: Female

DRUGS (1)
  1. KEPPRA [Suspect]
     Indication: MYOCLONIC EPILEPSY
     Dosage: 750 MG
     Dates: start: 20060828

REACTIONS (1)
  - DRUG EXPOSURE DURING PREGNANCY [None]
